FAERS Safety Report 5264772-9 (Version None)
Quarter: 2007Q1

REPORT INFORMATION
  Report Type: 
  Country: None (occurrence: None)
  Receive Date: 20070313
  Receipt Date: 20070226
  Transmission Date: 20070707
  Serious: Yes (Hospitalization)
  Sender: FDA-Public Use
  Company Number: PHRM2006FR03200

PATIENT
  Age: 37 Year
  Sex: Male
  Weight: 63 kg

DRUGS (3)
  1. LUDIOMIL [Suspect]
     Indication: DEPRESSION
     Dosage: 300 MG, ONCE/SINGLE
     Route: 048
     Dates: start: 20061206, end: 20061206
  2. METHADONE HCL [Suspect]
     Dosage: 60 MG PER DAY
     Route: 048
     Dates: start: 19960101
  3. ZOLOFT [Suspect]
     Indication: DEPRESSION
     Dosage: 50 MG, QD
     Route: 048
     Dates: start: 20051201

REACTIONS (6)
  - ANXIETY [None]
  - BALANCE DISORDER [None]
  - CONFUSIONAL STATE [None]
  - HALLUCINATION, VISUAL [None]
  - ILLUSION [None]
  - INCORRECT DOSE ADMINISTERED [None]
